FAERS Safety Report 6707492-3 (Version None)
Quarter: 2010Q2

REPORT INFORMATION
  Report Type: 
  Country: None (occurrence: None)
  Receive Date: 20100503
  Receipt Date: 20090113
  Transmission Date: 20101027
  Serious: Yes (Other)
  Sender: FDA-Public Use
  Company Number: US-BAYER-200810180NA

PATIENT

DRUGS (1)
  1. ULTRAVIST 370 [Suspect]
     Indication: ARTERIOGRAM CORONARY
     Dosage: UNK
     Route: 042

REACTIONS (4)
  - DYSPHAGIA [None]
  - ERYTHEMA [None]
  - FACE OEDEMA [None]
  - PHARYNGEAL OEDEMA [None]
